FAERS Safety Report 7635297-8 (Version None)
Quarter: 2011Q3

REPORT INFORMATION
  Report Type: 
  Country: None (occurrence: None)
  Receive Date: 20110718
  Receipt Date: 20110713
  Transmission Date: 20111222
  Serious: Yes (Hospitalization)
  Sender: FDA-Public Use
  Company Number: SP03804

PATIENT
  Age: 33 Year
  Sex: Female

DRUGS (1)
  1. APRISO [Suspect]
     Indication: CROHN'S DISEASE
     Dosage: 0.375 GM (0.375 GM, 1 IN 1 D),ORAL
     Route: 048
     Dates: end: 20110608

REACTIONS (2)
  - MATERNAL EXPOSURE DURING PREGNANCY [None]
  - VAGINAL HAEMORRHAGE [None]
